FAERS Safety Report 25035887 (Version 1)
Quarter: 2025Q1

REPORT INFORMATION
  Report Type: Spontaneous
  Country: PL (occurrence: PL)
  Receive Date: 20250304
  Receipt Date: 20250304
  Transmission Date: 20250408
  Serious: Yes (Hospitalization)
  Sender: ACCORD
  Company Number: None

PATIENT
  Age: 60 Year
  Sex: Female
  Weight: 58 kg

DRUGS (5)
  1. PACLITAXEL [Suspect]
     Active Substance: PACLITAXEL
     Indication: Ovarian cancer
     Dates: start: 20200115
  2. CLEMASTINE [Concomitant]
     Active Substance: CLEMASTINE
     Indication: Ovarian cancer
     Dates: start: 20200115
  3. ONDANSETRON [Concomitant]
     Active Substance: ONDANSETRON
     Indication: Ovarian cancer
     Dates: start: 20200115
  4. DEXAMETHASONE PHOSPHATE [Concomitant]
     Active Substance: DEXAMETHASONE PHOSPHATE
     Indication: Ovarian cancer
     Dates: start: 20200115
  5. CARBOPLATIN [Concomitant]
     Active Substance: CARBOPLATIN
     Indication: Ovarian cancer
     Dates: start: 20200115

REACTIONS (4)
  - Sensitisation [Recovered/Resolved]
  - Dysphonia [Recovered/Resolved]
  - Nasal congestion [Recovered/Resolved]
  - Erythema [Recovered/Resolved]

NARRATIVE: CASE EVENT DATE: 20210430
